FAERS Safety Report 9924258 (Version 3)
Quarter: 2014Q3

REPORT INFORMATION
  Report Type: Spontaneous
  Country: SE (occurrence: SE)
  Receive Date: 20140226
  Receipt Date: 20140714
  Transmission Date: 20150326
  Serious: Yes (Other)
  Sender: FDA-Public Use
  Company Number: SE-AMGEN-SWESP2013087351

PATIENT
  Age: 48 Year
  Sex: Male

DRUGS (7)
  1. ENBREL [Suspect]
     Active Substance: ETANERCEPT
     Dosage: 50 MG, WEEKLY
     Route: 065
     Dates: start: 20140116, end: 20140326
  2. TRAMADOL [Concomitant]
     Active Substance: TRAMADOL
     Dosage: UNK
  3. ORUDIS [Concomitant]
     Active Substance: KETOPROFEN
     Dosage: UNK, AS NEEDED
  4. ZOPIKLON [Concomitant]
     Active Substance: ZOPICLONE
     Dosage: UNK
  5. PROPAVAN [Concomitant]
     Active Substance: PROPIOMAZINE
     Dosage: UNK, ONCE A DAY, ADMINISTERED BEFORE NIGHT
  6. HUMIRA [Concomitant]
     Active Substance: ADALIMUMAB
     Dosage: UNK
  7. ENBREL [Suspect]
     Active Substance: ETANERCEPT
     Indication: ANKYLOSING SPONDYLITIS
     Dosage: 50 MG, WEEKLY
     Route: 065
     Dates: start: 20130916, end: 201311

REACTIONS (12)
  - Nasopharyngitis [Recovering/Resolving]
  - Amnesia [Recovered/Resolved]
  - Headache [Recovered/Resolved]
  - Fatigue [Not Recovered/Not Resolved]
  - Mental status changes [Recovered/Resolved]
  - Confusional state [Recovered/Resolved]
  - Psychotic disorder [Recovering/Resolving]
  - Depressed mood [Not Recovered/Not Resolved]
  - Oropharyngeal pain [Recovered/Resolved]
  - Fall [Recovered/Resolved]
  - Pyrexia [Recovered/Resolved]
  - Wound [Not Recovered/Not Resolved]

NARRATIVE: CASE EVENT DATE: 20130916
